FAERS Safety Report 5946422-9 (Version None)
Quarter: 2008Q4

REPORT INFORMATION
  Report Type: 
  Country: None (occurrence: None)
  Receive Date: 20081110
  Receipt Date: 20081110
  Transmission Date: 20090506
  Serious: Yes (Hospitalization)
  Sender: FDA-Public Use
  Company Number: US-ABBOTT-08P-163-0484755-00

PATIENT
  Sex: Male

DRUGS (9)
  1. HUMIRA [Suspect]
     Indication: ANKYLOSING SPONDYLITIS
     Route: 058
     Dates: start: 20071001, end: 20080601
  2. HUMIRA [Suspect]
     Dates: start: 20080901
  3. PAROXETINE HCL [Concomitant]
     Indication: DEPRESSION
     Route: 048
     Dates: start: 20080601
  4. BLOOD PRESSURE, NAME UNKNOWN [Concomitant]
     Indication: ANKYLOSING SPONDYLITIS
     Route: 048
  5. VICODIN [Concomitant]
     Indication: PAIN MANAGEMENT
     Route: 048
  6. VICODIN [Concomitant]
     Indication: ANKYLOSING SPONDYLITIS
  7. VALIUM [Concomitant]
     Indication: PAIN MANAGEMENT
  8. VALIUM [Concomitant]
     Indication: ANKYLOSING SPONDYLITIS
  9. ANTIBIOTIC, NAME UNKNOWN [Concomitant]
     Indication: INCISION SITE INFECTION
     Route: 048
     Dates: start: 20080101

REACTIONS (6)
  - ELECTROCARDIOGRAM ABNORMAL [None]
  - HYPOAESTHESIA [None]
  - IMPAIRED HEALING [None]
  - INCISION SITE INFECTION [None]
  - SPINAL COLUMN STENOSIS [None]
  - WOUND DRAINAGE [None]
